FAERS Safety Report 5956144-6 (Version None)
Quarter: 2008Q4

REPORT INFORMATION
  Report Type: 
  Country: None (occurrence: None)
  Receive Date: 20081118
  Receipt Date: 20081110
  Transmission Date: 20090506
  Serious: Yes (Other)
  Sender: FDA-Public Use
  Company Number: CA-BAYER-200814769NA

PATIENT
  Age: 26 Year
  Sex: Female

DRUGS (1)
  1. YASMIN [Suspect]
     Indication: POLYCYSTIC OVARIES
     Route: 048
     Dates: start: 20050101, end: 20070901

REACTIONS (11)
  - ABDOMINAL DISTENSION [None]
  - DEPRESSION [None]
  - DIZZINESS [None]
  - DRUG WITHDRAWAL SYNDROME [None]
  - FEAR [None]
  - HEADACHE [None]
  - IDIOSYNCRATIC DRUG REACTION [None]
  - INSULIN RESISTANCE [None]
  - MENSTRUATION IRREGULAR [None]
  - SEROTONIN SYNDROME [None]
  - UTERINE PAIN [None]
